FAERS Safety Report 8269319-0 (Version None)
Quarter: 2012Q2

REPORT INFORMATION
  Report Type: 
  Country: None (occurrence: None)
  Receive Date: 20120409
  Receipt Date: 20120406
  Transmission Date: 20120825
  Serious: Yes (Death, Hospitalization)
  Sender: FDA-Public Use
  Company Number: US-B.I. PHARMACEUTICALS,INC./RIDGEFIELD-2012-BP-05557BP

PATIENT
  Age: 50 Year
  Sex: Female

DRUGS (2)
  1. AMIODARONE HYDROCHLORIDE [Concomitant]
  2. PRADAXA [Suspect]
     Indication: ATRIAL FIBRILLATION
     Route: 048

REACTIONS (2)
  - CORONARY ARTERY EMBOLISM [None]
  - COX-MAZE PROCEDURE [None]
